FAERS Safety Report 17288368 (Version 1)
Quarter: 2020Q1

REPORT INFORMATION
  Report Type: Spontaneous
  Country: GB (occurrence: GB)
  Receive Date: 20200120
  Receipt Date: 20200120
  Transmission Date: 20200409
  Serious: Yes (Other)
  Sender: FDA-Public Use
  Company Number: GB-TEVA-2020-GB-1169674

PATIENT
  Age: 33 Year
  Sex: Female
  Weight: 74 kg

DRUGS (8)
  1. FLUCLOXACILLIN [Concomitant]
     Active Substance: FLUCLOXACILLIN
     Dosage: 4 DOSAGE FORMS
     Dates: start: 20191217
  2. SYNALAR [Concomitant]
     Active Substance: FLUOCINOLONE ACETONIDE
     Dosage: DAILY APPLICATION FOR 2 WEEK BURST FOR FLARES 1  DOSAGE FORMS
     Dates: start: 20190325
  3. CLARITHROMYCIN. [Concomitant]
     Active Substance: CLARITHROMYCIN
     Dosage: 1 DOSAGE FORMS
     Dates: start: 20191219
  4. HYDROCORTISONE. [Concomitant]
     Active Substance: HYDROCORTISONE
     Dosage: APPLY THINLY, AVOID USING ON FACE. 2 DOSAGE FORMS
     Dates: start: 20191212
  5. PHENOXYMETHYLPENICILLIN [Suspect]
     Active Substance: PENICILLIN V
     Dosage: 1000 MG
     Dates: start: 20191217
  6. TRIMOVATE [Concomitant]
     Active Substance: CLOBETASONE BUTYRATE\NYSTATIN\OXYTETRACYCLINE CALCIUM
     Dosage: TO FACE FOR 1 WEEK BURSTS. 1 DOSAGE FORMS
     Dates: start: 20190325
  7. EMULSIFYING WAX [Concomitant]
     Dosage: USE AS DIRECTED.
     Dates: start: 20190116
  8. KETOCONAZOLE. [Concomitant]
     Active Substance: KETOCONAZOLE
     Dosage: LEAVE ON FOR 5 MINUTES. 1 DOSAGE FORMS
     Dates: start: 20191025

REACTIONS (2)
  - Swelling face [Recovering/Resolving]
  - Pruritus [Unknown]

NARRATIVE: CASE EVENT DATE: 20191219
